FAERS Safety Report 8040852-X (Version None)
Quarter: 2012Q1

REPORT INFORMATION
  Report Type: 
  Country: None (occurrence: None)
  Receive Date: 20120112
  Receipt Date: 20120103
  Transmission Date: 20120608
  Serious: Yes (Death, Other)
  Sender: FDA-Public Use
  Company Number: US-BIOGENIDEC-2012BI000436

PATIENT
  Age: 25 Year
  Sex: Male

DRUGS (2)
  1. TYSABRI [Suspect]
     Indication: MULTIPLE SCLEROSIS
     Route: 042
     Dates: start: 20100728, end: 20111117
  2. TYSABRI [Suspect]
     Route: 042
     Dates: start: 20050225, end: 20050325

REACTIONS (2)
  - COMPLETED SUICIDE [None]
  - SUICIDE ATTEMPT [None]
